FAERS Safety Report 13393296 (Version 1)
Quarter: 2017Q1

REPORT INFORMATION
  Report Type: Spontaneous
  Country: US (occurrence: US)
  Receive Date: 20170331
  Receipt Date: 20170331
  Transmission Date: 20170429
  Serious: Yes (Other)
  Sender: FDA-Public Use
  Company Number: US-BAYER-2017-061147

PATIENT
  Age: 92 Year
  Sex: Female

DRUGS (11)
  1. MAGNESIUM [Concomitant]
     Active Substance: MAGNESIUM
     Dosage: 1 DF, QD
     Route: 048
     Dates: start: 20170107
  2. DONEPEZIL. [Concomitant]
     Active Substance: DONEPEZIL
     Dosage: 1 DF, BID
     Dates: start: 20170107
  3. ENSURE [AMINO ACIDS NOS,MINERALS NOS,VITAMINS NOS] [Concomitant]
  4. DILTIAZEM. [Concomitant]
     Active Substance: DILTIAZEM
     Dosage: 120 MG, QD
     Route: 048
     Dates: start: 20170101
  5. ADVAIR HFA [Concomitant]
     Active Substance: FLUTICASONE PROPIONATE\SALMETEROL XINAFOATE
     Dosage: 1 DF, BID
     Route: 045
     Dates: start: 20170127
  6. CYANOCOBALAMIN. [Suspect]
     Active Substance: CYANOCOBALAMIN
     Dosage: 1 DF, Q1MON
     Route: 030
     Dates: start: 20170107
  7. BISMATROL [Concomitant]
     Active Substance: BISMUTH SUBSALICYLATE
     Dosage: 30 ML, UNK
     Route: 048
     Dates: start: 20170107
  8. CETIRIZINE HYDROCHLORIDE. [Concomitant]
     Active Substance: CETIRIZINE HYDROCHLORIDE
     Dosage: 120 MG, QD
     Route: 048
     Dates: start: 20170101
  9. ACETYLSALICYLIC ACID (} 100 MG) [Suspect]
     Active Substance: ASPIRIN
     Dosage: 81 MG, QD
     Route: 048
     Dates: start: 20170107
  10. CALCIUM +VIT D [Concomitant]
     Active Substance: CALCIUM\VITAMIN D
     Dosage: 1 DF, QD
     Route: 048
     Dates: start: 20170107
  11. CETIRIZINE HYDROCHLORIDE. [Concomitant]
     Active Substance: CETIRIZINE HYDROCHLORIDE
     Dosage: 10 MG, PRN
     Route: 048
     Dates: start: 20170107

REACTIONS (7)
  - Gait disturbance [Unknown]
  - Anal incontinence [Unknown]
  - Abnormal loss of weight [Unknown]
  - Urinary incontinence [Unknown]
  - Chronic obstructive pulmonary disease [Unknown]
  - Dementia [Unknown]
  - Surgery [Unknown]

NARRATIVE: CASE EVENT DATE: 2017
